FAERS Safety Report 9467678 (Version 1)
Quarter: 2013Q3

REPORT INFORMATION
  Report Type: Spontaneous
  Country: US (occurrence: None)
  Receive Date: 20130819
  Receipt Date: 20130819
  Transmission Date: 20140515
  Serious: Yes (Hospitalization, Other)
  Sender: FDA-Public Use
  Company Number: None

PATIENT
  Age: 79 Year
  Sex: Male

DRUGS (1)
  1. REMICADE [Suspect]
     Indication: RHEUMATOID ARTHRITIS
     Dosage: INTO A VEIN
     Route: 042
     Dates: start: 20130816, end: 20130816

REACTIONS (6)
  - Infusion related reaction [None]
  - Burning sensation [None]
  - Blister [None]
  - Blood pressure decreased [None]
  - Confusional state [None]
  - Fall [None]
